FAERS Safety Report 6701758-9 (Version None)
Quarter: 2010Q2

REPORT INFORMATION
  Report Type: 
  Country: None (occurrence: None)
  Receive Date: 20100429
  Receipt Date: 20100422
  Transmission Date: 20101027
  Serious: Yes (Death, Other)
  Sender: FDA-Public Use
  Company Number: PHHY2010US21415

PATIENT
  Sex: Male
  Weight: 99.773 kg

DRUGS (4)
  1. EXJADE [Suspect]
     Indication: IRON OVERLOAD
     Dosage: 1000 MG, QD
     Route: 048
     Dates: start: 20080701
  2. EXJADE [Suspect]
     Indication: LYMPHATIC DISORDER
  3. EXJADE [Suspect]
     Indication: BLOOD DISORDER
  4. BETA BLOCKING AGENTS [Concomitant]
     Dosage: UNK

REACTIONS (2)
  - FALL [None]
  - HAEMORRHAGE INTRACRANIAL [None]
